FAERS Safety Report 7449493-6 (Version None)
Quarter: 2011Q2

REPORT INFORMATION
  Report Type: 
  Country: None (occurrence: None)
  Receive Date: 20110502
  Receipt Date: 20110419
  Transmission Date: 20111010
  Serious: Yes (Life-Threatening, Hospitalization, Other)
  Sender: FDA-Public Use
  Company Number: US-BAYER-2011-035196

PATIENT
  Sex: Female

DRUGS (1)
  1. AVELOX [Suspect]

REACTIONS (4)
  - RENAL DISORDER [None]
  - HYPERSENSITIVITY [None]
  - DIALYSIS [None]
  - RESPIRATORY DISORDER [None]
